FAERS Safety Report 19645501 (Version 1)
Quarter: 2021Q3

REPORT INFORMATION
  Report Type: Spontaneous
  Country: US (occurrence: US)
  Receive Date: 20210730
  Receipt Date: 20210730
  Transmission Date: 20211014
  Serious: Yes (Other)
  Sender: FDA-Public Use
  Company Number: None

PATIENT
  Age: 81 Year
  Sex: Female
  Weight: 62.46 kg

DRUGS (13)
  1. CAPECITABINE. [Suspect]
     Active Substance: CAPECITABINE
     Indication: BREAST CANCER FEMALE
     Dosage: ?          OTHER FREQUENCY:AM;?
     Route: 048
     Dates: start: 20210603, end: 20210730
  2. AMLODIPINE [Concomitant]
     Active Substance: AMLODIPINE BESYLATE
  3. QUINAPRIL. [Concomitant]
     Active Substance: QUINAPRIL
  4. HYDROCHLOROTHIAZIDE. [Concomitant]
     Active Substance: HYDROCHLOROTHIAZIDE
  5. TRAMADOL. [Concomitant]
     Active Substance: TRAMADOL
  6. HERCEPTIN [Concomitant]
     Active Substance: TRASTUZUMAB
  7. TYLENOL [Concomitant]
     Active Substance: ACETAMINOPHEN
  8. CAPECITABINE. [Suspect]
     Active Substance: CAPECITABINE
     Indication: BREAST CANCER FEMALE
     Dosage: ?          OTHER FREQUENCY:EVENING;?
     Route: 048
     Dates: start: 20210603, end: 20210730
  9. LORAZEPAM. [Concomitant]
     Active Substance: LORAZEPAM
  10. LASIX [Concomitant]
     Active Substance: FUROSEMIDE
  11. PROTONIX [Concomitant]
     Active Substance: PANTOPRAZOLE SODIUM
  12. PROCHLORPERAZINE. [Concomitant]
     Active Substance: PROCHLORPERAZINE
  13. ONDANSETRON [Concomitant]
     Active Substance: ONDANSETRON

REACTIONS (1)
  - Disease progression [None]

NARRATIVE: CASE EVENT DATE: 20210730
